FAERS Safety Report 9432027 (Version 1)
Quarter: 2013Q3

REPORT INFORMATION
  Report Type: Spontaneous
  Country: None (occurrence: None)
  Receive Date: 20130726
  Receipt Date: 20130726
  Transmission Date: 20140515
  Serious: Yes (Life-Threatening, Other)
  Sender: FDA-Public Use
  Company Number: FK201302666

PATIENT
  Age: 23 Year
  Sex: Female

DRUGS (2)
  1. HEPARIN [Suspect]
     Indication: PULMONARY EMBOLISM
     Dosage: TITRATE TO A PTT BETWEEN 1.5
  2. TISSUE PLASMINOGEN ACTIVATOR, RECOMBINATIVE (ATLEPLASE) [Suspect]
     Indication: PULMONARY EMBOLISM
     Dosage: INFUSED OVER 2 HOURS

REACTIONS (10)
  - Haemothorax [None]
  - Syncope [None]
  - Haemoglobin decreased [None]
  - White blood cell count increased [None]
  - Platelet count decreased [None]
  - Blood pH decreased [None]
  - Pleural effusion [None]
  - Atelectasis [None]
  - Vena cava thrombosis [None]
  - Cold sweat [None]
